FAERS Safety Report 12424601 (Version 1)
Quarter: 2016Q2

REPORT INFORMATION
  Report Type: Spontaneous
  Country: ES (occurrence: ES)
  Receive Date: 20160601
  Receipt Date: 20160601
  Transmission Date: 20160815
  Serious: Yes (Death)
  Sender: FDA-Public Use
  Company Number: ES-PFIZER INC-2016279313

PATIENT

DRUGS (1)
  1. AXITINIB [Suspect]
     Active Substance: AXITINIB
     Indication: NEOPLASM MALIGNANT

REACTIONS (3)
  - Cerebral haemorrhage [Fatal]
  - Disease progression [Unknown]
  - Neoplasm malignant [Unknown]
